FAERS Safety Report 9237585 (Version 1)
Quarter: 2013Q2

REPORT INFORMATION
  Report Type: Spontaneous
  Country: GB (occurrence: GB)
  Receive Date: 20130418
  Receipt Date: 20130418
  Transmission Date: 20140414
  Serious: Yes (Other)
  Sender: FDA-Public Use
  Company Number: GB-ACCORD-017189

PATIENT
  Age: 75 Year
  Sex: Female

DRUGS (12)
  1. MYCOPHENOLATE MOFETIL [Suspect]
     Indication: PRODUCT USED FOR UNKNOWN INDICATION
     Dates: start: 20121219, end: 20130326
  2. MYFENAX [Suspect]
     Indication: PRODUCT USED FOR UNKNOWN INDICATION
     Route: 048
     Dates: start: 20121219, end: 20130326
  3. SERETIDE [Concomitant]
  4. FLUOXETINE [Concomitant]
  5. CODEINE PHOSPHATE [Concomitant]
  6. OMEPRAZOLE [Concomitant]
  7. MUCODYNE [Concomitant]
  8. ADCAL-D3 [Concomitant]
  9. SPIRIVA [Concomitant]
  10. BENDROFLUMETHIAZIDE [Concomitant]
  11. ALENDRONIC ACID [Concomitant]
  12. PREDNISOLONE [Concomitant]

REACTIONS (1)
  - Aphthous stomatitis [Not Recovered/Not Resolved]
